FAERS Safety Report 23331216 (Version 1)
Quarter: 2023Q4

REPORT INFORMATION
  Report Type: Spontaneous
  Country: US (occurrence: US)
  Receive Date: 20231222
  Receipt Date: 20231222
  Transmission Date: 20240109
  Serious: No
  Sender: FDA-Public Use
  Company Number: US-PFIZER INC-202300445468

PATIENT
  Age: 13 Year
  Sex: Male
  Weight: 23.129 kg

DRUGS (1)
  1. NGENLA [Suspect]
     Active Substance: SOMATROGON-GHLA
     Indication: Growth hormone deficiency
     Dosage: 60MG PRE-FILED PEN, 17.5MG INJECTION ONCE A WEEK
     Dates: start: 20231202

REACTIONS (1)
  - Injection site erythema [Recovering/Resolving]

NARRATIVE: CASE EVENT DATE: 20231211
